FAERS Safety Report 6360644-7 (Version None)
Quarter: 2009Q3

REPORT INFORMATION
  Report Type: 
  Country: None (occurrence: None)
  Receive Date: 20090915
  Receipt Date: 20090909
  Transmission Date: 20100115
  Serious: Yes (Death, Other)
  Sender: FDA-Public Use
  Company Number: 2009SP017854

PATIENT
  Age: 87 Year
  Sex: Female
  Weight: 54.4316 kg

DRUGS (17)
  1. MIRALAX [Suspect]
     Dosage: QOD, PO
     Route: 048
  2. COMTAN [Concomitant]
  3. DIGOXIN [Concomitant]
  4. ALLOPURINOL [Concomitant]
  5. LEVOXYL [Concomitant]
  6. MACRODANTIN [Concomitant]
  7. EVISTA [Concomitant]
  8. FUROSEMIDE [Concomitant]
  9. POTASSIUM CHLORIDE [Concomitant]
  10. ZOCOR [Concomitant]
  11. GLIPIZIDE [Concomitant]
  12. CLARINEX [Concomitant]
  13. SINGULAIR [Concomitant]
  14. COUMADIN [Concomitant]
  15. NEXIUM [Concomitant]
  16. PARCOPA [Concomitant]
  17. TRIMETHOBENZAMIDE HCL [Concomitant]

REACTIONS (1)
  - FAECES DISCOLOURED [None]
